FAERS Safety Report 9474277 (Version 2)
Quarter: 2013Q3

REPORT INFORMATION
  Report Type: Report from Study
  Country: CN (occurrence: CN)
  Receive Date: 20130823
  Receipt Date: 20130823
  Transmission Date: 20140515
  Serious: Yes (Hospitalization, Other)
  Sender: FDA-Public Use
  Company Number: PHHO2009CN09680

PATIENT
  Age: 51 Year
  Sex: Male
  Weight: 70 kg

DRUGS (8)
  1. ALISKIREN [Suspect]
     Indication: CARDIOVASCULAR DISORDER
     Route: 048
     Dates: start: 20081221, end: 20090330
  2. BETALOC [Concomitant]
  3. POTASSIUM CHLORIDE [Concomitant]
  4. L-CARNITINE [Concomitant]
  5. ERYTHROPOIETIN [Concomitant]
  6. GLUTATHIONE [Concomitant]
  7. CEFTIZOXIME [Concomitant]
  8. INSULIN [Concomitant]

REACTIONS (2)
  - Blood creatinine increased [Recovering/Resolving]
  - Asthenia [Not Recovered/Not Resolved]
